FAERS Safety Report 9026091 (Version 1)
Quarter: 2013Q1

REPORT INFORMATION
  Report Type: Spontaneous
  Country: US (occurrence: None)
  Receive Date: 20130107
  Receipt Date: 20130107
  Transmission Date: 20140127
  Serious: Yes (Hospitalization)
  Sender: FDA-Public Use
  Company Number: C-12-0489

PATIENT
  Age: 77 Year
  Sex: Female

DRUGS (8)
  1. NYSTATIN [Suspect]
     Indication: SPEECH DISORDER
     Route: 048
     Dates: start: 20121213, end: 20121218
  2. CARBIDOPA [Concomitant]
  3. FLOVENT [Concomitant]
  4. PROAIR [Concomitant]
  5. NEBULIZED ALBUTEROL [Concomitant]
  6. ASPIRIN [Concomitant]
  7. CITRACAL [Concomitant]
  8. FISH OIL TABLETS [Concomitant]

REACTIONS (3)
  - Fall [None]
  - Dysstasia [None]
  - Blood alcohol increased [None]
